FAERS Safety Report 10265208 (Version 1)
Quarter: 2014Q2

REPORT INFORMATION
  Report Type: Spontaneous
  Country: US (occurrence: None)
  Receive Date: 20140625
  Receipt Date: 20140625
  Transmission Date: 20141212
  Serious: Yes (Hospitalization)
  Sender: FDA-Public Use
  Company Number: None

PATIENT
  Age: 20 Year
  Sex: Male
  Weight: 61.69 kg

DRUGS (8)
  1. EXJADE [Suspect]
     Indication: SICKLE CELL ANAEMIA
     Route: 048
     Dates: start: 20120706
  2. VITAMIN D [Concomitant]
  3. HYDROXYUREA [Concomitant]
  4. IBU [Concomitant]
  5. PENVK [Concomitant]
  6. SYMBICORT [Concomitant]
  7. FLUTICASONE [Concomitant]
  8. PROAIR [Concomitant]

REACTIONS (1)
  - Hospitalisation [None]
